FAERS Safety Report 8834697 (Version 2)
Quarter: 2012Q4

REPORT INFORMATION
  Report Type: Spontaneous
  Country: US (occurrence: None)
  Receive Date: 20120925
  Receipt Date: 20121004
  Transmission Date: 20130627
  Serious: Yes (Death)
  Sender: FDA-Public Use
  Company Number: 2012033405

PATIENT
  Sex: Female
  Weight: 66.23 kg

DRUGS (1)
  1. ZEMAIRA [Suspect]
     Indication: CHRONIC OBSTRUCTIVE PULMONARY DISEASE
     Dosage: 120 mg/kg 1x/2 weeks, { 1 hour Intravenous (not otherwise specified))

REACTIONS (1)
  - Respiratory failure [None]
